FAERS Safety Report 18764389 (Version 2)
Quarter: 2021Q1

REPORT INFORMATION
  Report Type: Spontaneous
  Country: US (occurrence: US)
  Receive Date: 20210120
  Receipt Date: 20210201
  Transmission Date: 20210419
  Serious: Yes (Other)
  Sender: FDA-Public Use
  Company Number: US-PFIZER INC-2021026109

PATIENT
  Sex: Male
  Weight: 106.59 kg

DRUGS (1)
  1. NARDIL [Suspect]
     Active Substance: PHENELZINE SULFATE
     Indication: DEPRESSION
     Dosage: 15 MG, (60 MG TO 90 MG TOTAL AS NEEDED)
     Dates: start: 198710, end: 2001

REACTIONS (5)
  - Depression [Unknown]
  - Therapeutic product effect decreased [Unknown]
  - Suicidal behaviour [Unknown]
  - Blood pressure abnormal [Unknown]
  - Weight increased [Unknown]
